FAERS Safety Report 6509114-3 (Version None)
Quarter: 2009Q4

REPORT INFORMATION
  Report Type: 
  Country: None (occurrence: None)
  Receive Date: 20091221
  Receipt Date: 20091209
  Transmission Date: 20100525
  Serious: Yes (Hospitalization)
  Sender: FDA-Public Use
  Company Number: BE-PFIZER INC-2009275258

PATIENT
  Age: 61 Year

DRUGS (2)
  1. DEPO-MEDROL [Suspect]
     Indication: URTICARIA
     Dosage: 40 MG, SINGLE
     Route: 030
     Dates: start: 20090701
  2. MEDROL [Suspect]
     Dosage: 32 MG, SINGLE
     Route: 048
     Dates: start: 20090925, end: 20090926

REACTIONS (2)
  - FACE OEDEMA [None]
  - RASH [None]
